FAERS Safety Report 5900268-6 (Version None)
Quarter: 2008Q3

REPORT INFORMATION
  Report Type: 
  Country: None (occurrence: None)
  Receive Date: 20080926
  Receipt Date: 20080922
  Transmission Date: 20090109
  Serious: Yes (Death)
  Sender: FDA-Public Use
  Company Number: PHBS2008US05779

PATIENT
  Age: 44 Year
  Sex: Male

DRUGS (9)
  1. CYCLOSPORINE [Suspect]
     Indication: BONE MARROW TRANSPLANT
  2. CYCLOSPORINE [Suspect]
     Indication: PROPHYLAXIS AGAINST GRAFT VERSUS HOST DISEASE
  3. METHOTREXATE [Concomitant]
     Indication: BONE MARROW TRANSPLANT
  4. METHOTREXATE [Concomitant]
     Indication: PROPHYLAXIS AGAINST GRAFT VERSUS HOST DISEASE
  5. CYTOXAN [Concomitant]
  6. HEPARIN [Concomitant]
     Indication: THROMBOSIS PROPHYLAXIS
  7. ACYCLOVIR [Concomitant]
     Indication: INFECTION PROPHYLAXIS
  8. FLUCONAZOLE [Concomitant]
     Indication: ANTIFUNGAL PROPHYLAXIS
  9. RADIATION TREATMENT [Concomitant]
     Dosage: TOTAL BODY IRRADIATION

REACTIONS (2)
  - GRAFT VERSUS HOST DISEASE [None]
  - SEPSIS [None]
